FAERS Safety Report 13983362 (Version 4)
Quarter: 2018Q1

REPORT INFORMATION
  Report Type: Spontaneous
  Country: US (occurrence: US)
  Receive Date: 20170918
  Receipt Date: 20180328
  Transmission Date: 20180508
  Serious: Yes (Other)
  Sender: FDA-Public Use
  Company Number: US-OTSUKA-2017_019823

PATIENT
  Sex: Male

DRUGS (5)
  1. ABILIFY [Suspect]
     Active Substance: ARIPIPRAZOLE
     Indication: BIPOLAR I DISORDER
     Dosage: UNK
     Route: 048
  2. LITHIUM. [Concomitant]
     Active Substance: LITHIUM
     Indication: PRODUCT USED FOR UNKNOWN INDICATION
     Dosage: 1200-1500MG/ TOOK 1/2 DOSE
     Route: 065
     Dates: end: 2016
  3. ABILIFY MAINTENA [Suspect]
     Active Substance: ARIPIPRAZOLE
     Indication: SCHIZOPHRENIA
  4. ABILIFY [Suspect]
     Active Substance: ARIPIPRAZOLE
     Indication: SCHIZOPHRENIA
  5. ABILIFY MAINTENA [Suspect]
     Active Substance: ARIPIPRAZOLE
     Indication: BIPOLAR I DISORDER
     Dosage: 400 MG, SINGLE (ONCE)
     Route: 065
     Dates: start: 20170717, end: 20170717

REACTIONS (8)
  - Delusion [Unknown]
  - Psychotic disorder [Unknown]
  - Economic problem [Unknown]
  - Personal relationship issue [Unknown]
  - Educational problem [Unknown]
  - Poor personal hygiene [Unknown]
  - Mania [Unknown]
  - Inability to afford medication [Unknown]
